FAERS Safety Report 16339138 (Version 2)
Quarter: 2019Q2

REPORT INFORMATION
  Report Type: Spontaneous
  Country: HR (occurrence: HR)
  Receive Date: 20190521
  Receipt Date: 20190602
  Transmission Date: 20190711
  Serious: Yes (Other)
  Sender: FDA-Public Use
  Company Number: PHHY2019HR115027

PATIENT
  Age: 72 Year
  Sex: Female

DRUGS (1)
  1. SANVAL [Suspect]
     Active Substance: ZOLPIDEM TARTRATE
     Indication: PRODUCT USED FOR UNKNOWN INDICATION
     Dosage: 20 DF, UNK
     Route: 048

REACTIONS (4)
  - Suicide attempt [Unknown]
  - Dyspnoea [Unknown]
  - Somnolence [Unknown]
  - Intentional overdose [Unknown]

NARRATIVE: CASE EVENT DATE: 201901
